FAERS Safety Report 8881572 (Version 1)
Quarter: 2012Q4

REPORT INFORMATION
  Report Type: 
  Country: US (occurrence: US)
  Receive Date: 20121101
  Receipt Date: 20121101
  Transmission Date: 20130627
  Serious: Yes (Hospitalization)
  Sender: FDA-Public Use
  Company Number: US-ASTRAZENECA-2012SE80780

PATIENT
  Age: 54 Year
  Sex: Male

DRUGS (5)
  1. SYMBICORT PMDI [Suspect]
     Dosage: USED EVERY COUPLE OF DAY
     Route: 055
  2. SYMBICORT PMDI [Suspect]
     Dosage: 2 PUFFS TWICE DAILY
     Route: 055
  3. COMBIVENT [Concomitant]
  4. PROAIR [Concomitant]
  5. SPIRIVA [Concomitant]

REACTIONS (2)
  - Lung infection [Unknown]
  - Intentional drug misuse [Recovered/Resolved]
